FAERS Safety Report 7541042-7 (Version None)
Quarter: 2011Q2

REPORT INFORMATION
  Report Type: 
  Country: None (occurrence: None)
  Receive Date: 20110610
  Receipt Date: 20101124
  Transmission Date: 20111010
  Serious: No
  Sender: FDA-Public Use
  Company Number: A0896384A

PATIENT
  Age: 57 Year
  Sex: Female

DRUGS (3)
  1. WARFARIN SODIUM [Concomitant]
  2. ALTABAX [Suspect]
     Indication: STAPHYLOCOCCAL INFECTION
     Dosage: 1APP PER DAY
     Route: 061
     Dates: start: 20101122, end: 20101123
  3. PREDNISONE [Concomitant]

REACTIONS (2)
  - CHEILITIS [None]
  - BURNING SENSATION [None]
